FAERS Safety Report 4628240-7 (Version None)
Quarter: 2005Q2

REPORT INFORMATION
  Report Type: 
  Country: None (occurrence: None)
  Receive Date: 20050401
  Receipt Date: 20050324
  Transmission Date: 20051028
  Serious: Yes (Death)
  Sender: FDA-Public Use
  Company Number: 2005US000129

PATIENT
  Age: 86 Year
  Sex: Male
  Weight: 89.3 kg

DRUGS (1)
  1. ADENOSCAN [Suspect]
     Indication: SCAN MYOCARDIAL PERFUSION
     Dosage: 75.20 MG, UNK, INTRAVENOUS
     Route: 042
     Dates: start: 20050124, end: 20050124

REACTIONS (1)
  - DYSPNOEA [None]
